FAERS Safety Report 6303375-1 (Version None)
Quarter: 2009Q3

REPORT INFORMATION
  Report Type: 
  Country: None (occurrence: None)
  Receive Date: 20090810
  Receipt Date: 20090805
  Transmission Date: 20100115
  Serious: Yes (Other)
  Sender: FDA-Public Use
  Company Number: US-BRISTOL-MYERS SQUIBB COMPANY-14714539

PATIENT
  Age: 52 Year
  Sex: Female
  Weight: 80 kg

DRUGS (6)
  1. ORENCIA [Suspect]
     Indication: RHEUMATOID ARTHRITIS
     Dosage: RECENT INF: 02JUN09;NEXT INFUSION ON 28-JUL-2009; 3 VIALS OF 4 WEEK
     Route: 042
     Dates: start: 20070608
  2. METHOTREXATE [Suspect]
     Dosage: TAKEN ON FRIDAY.
     Route: 048
  3. NAPROSYN [Concomitant]
  4. ZETIA [Concomitant]
  5. FOSAMAX [Concomitant]
  6. METOPROLOL [Concomitant]

REACTIONS (1)
  - CEREBROVASCULAR ACCIDENT [None]
